FAERS Safety Report 18783648 (Version 2)
Quarter: 2021Q1

REPORT INFORMATION
  Report Type: Spontaneous
  Country: US (occurrence: US)
  Receive Date: 20210125
  Receipt Date: 20210218
  Transmission Date: 20210419
  Serious: Yes (Other)
  Sender: FDA-Public Use
  Company Number: US-PFIZER INC-2019261741

PATIENT
  Age: 80 Year
  Sex: Female

DRUGS (2)
  1. GABAPENTIN. [Suspect]
     Active Substance: GABAPENTIN
     Dosage: 200 MG, DAILY
     Route: 048
  2. NEURONTIN [Suspect]
     Active Substance: GABAPENTIN
     Dosage: 300 MG, DAILY
     Route: 048

REACTIONS (7)
  - Vulvovaginal discomfort [Unknown]
  - Pelvic prolapse [Unknown]
  - Vaginal discharge [Unknown]
  - Atrophic vulvovaginitis [Unknown]
  - Vulvovaginal pain [Unknown]
  - Micturition urgency [Unknown]
  - Dementia [Unknown]
